FAERS Safety Report 5564229-1 (Version None)
Quarter: 2007Q4

REPORT INFORMATION
  Report Type: 
  Country: None (occurrence: None)
  Receive Date: 20071212
  Receipt Date: 20071204
  Transmission Date: 20080405
  Serious: Yes (Hospitalization)
  Sender: FDA-Public Use
  Company Number: 2007S1012791

PATIENT
  Age: 41 Year
  Sex: Female

DRUGS (1)
  1. CIPROFLOXACIN [Suspect]
     Indication: URINARY TRACT INFECTION
     Dosage: 500 MG; ORAL; TWICE A DAY
     Route: 048
     Dates: start: 20070110, end: 20070114

REACTIONS (8)
  - ARTHRALGIA [None]
  - BACK PAIN [None]
  - BLINDNESS [None]
  - EYE DISCHARGE [None]
  - EYE INFLAMMATION [None]
  - OSTEITIS [None]
  - PAIN IN EXTREMITY [None]
  - SWELLING [None]
